FAERS Safety Report 8823271 (Version 2)
Quarter: 2012Q4

REPORT INFORMATION
  Report Type: 
  Country: CN (occurrence: CN)
  Receive Date: 20121003
  Receipt Date: 20121012
  Transmission Date: 20130627
  Serious: No
  Sender: FDA-Public Use
  Company Number: CN-GLAXOSMITHKLINE-B0834525A

PATIENT
  Age: 45 Year
  Sex: Female

DRUGS (1)
  1. BACTROBAN [Suspect]
     Indication: PRURITUS
     Route: 065
     Dates: start: 20120923, end: 20120924

REACTIONS (6)
  - Erythema [Recovering/Resolving]
  - Swelling [Recovering/Resolving]
  - Purulence [Recovering/Resolving]
  - Pain [Recovering/Resolving]
  - Drug hypersensitivity [Recovering/Resolving]
  - Off label use [Unknown]
